FAERS Safety Report 16649457 (Version 2)
Quarter: 2019Q3

REPORT INFORMATION
  Report Type: Spontaneous
  Country: PL (occurrence: PL)
  Receive Date: 20190730
  Receipt Date: 20190816
  Transmission Date: 20191004
  Serious: Yes (Other)
  Sender: FDA-Public Use
  Company Number: PL-SHIRE-PL201923823

PATIENT

DRUGS (3)
  1. SALOFALK [Concomitant]
     Indication: HYPERTENSION
  2. 476 (MESALAZINE/MESALAMINE) [Suspect]
     Active Substance: MESALAMINE
     Indication: COLITIS ULCERATIVE
     Dosage: UNK, UNKNOWN
     Route: 065
  3. SALOFALK [Concomitant]
     Indication: NEPHRITIS

REACTIONS (3)
  - Nephritis [Not Recovered/Not Resolved]
  - Hypertension [Unknown]
  - Acute kidney injury [Not Recovered/Not Resolved]
